FAERS Safety Report 17775094 (Version 1)
Quarter: 2020Q2

REPORT INFORMATION
  Report Type: Spontaneous
  Country: US (occurrence: US)
  Receive Date: 20200512
  Receipt Date: 20200512
  Transmission Date: 20200714
  Serious: No
  Sender: FDA-Public Use
  Company Number: None

PATIENT
  Age: 57 Year
  Sex: Female
  Weight: 55.8 kg

DRUGS (14)
  1. ACYCLOVIR. [Concomitant]
     Active Substance: ACYCLOVIR
  2. LORAZEPAM. [Concomitant]
     Active Substance: LORAZEPAM
  3. SOMA [Concomitant]
     Active Substance: CARISOPRODOL
  4. LEXIVA [Concomitant]
     Active Substance: FOSAMPRENAVIR CALCIUM
  5. OMEPRAZOLE. [Concomitant]
     Active Substance: OMEPRAZOLE
  6. EPIVIR [Concomitant]
     Active Substance: LAMIVUDINE
  7. FLONASE [Concomitant]
     Active Substance: FLUTICASONE PROPIONATE
  8. MUCINIEX [Concomitant]
  9. PROBIOTICS [Concomitant]
     Active Substance: PROBIOTICS NOS
  10. OLANZAPINE. [Suspect]
     Active Substance: OLANZAPINE
     Indication: PARANOIA
     Dosage: ?          QUANTITY:1 TABLET(S);?
     Route: 048
  11. TRENTAL [Concomitant]
     Active Substance: PENTOXIFYLLINE
  12. HYDROCODONE [Concomitant]
     Active Substance: HYDROCODONE
  13. MELATONIN [Concomitant]
     Active Substance: MELATONIN
  14. CRANBERRY. [Concomitant]
     Active Substance: CRANBERRY

REACTIONS (15)
  - Dizziness [None]
  - Orthostatic hypotension [None]
  - Asthenia [None]
  - Autonomic nervous system imbalance [None]
  - Constipation [None]
  - Gait disturbance [None]
  - Blood pressure increased [None]
  - Muscle rigidity [None]
  - Dry mouth [None]
  - Dyspepsia [None]
  - Tremor [None]
  - Pyrexia [None]
  - Hyperhidrosis [None]
  - Insomnia [None]
  - Hypertonia [None]

NARRATIVE: CASE EVENT DATE: 20161026
